FAERS Safety Report 12949446 (Version 1)
Quarter: 2016Q4

REPORT INFORMATION
  Report Type: Other
  Country: US (occurrence: US)
  Receive Date: 20161116
  Receipt Date: 20161116
  Transmission Date: 20170207
  Serious: No
  Sender: FDA-Public Use
  Company Number: US-OSMOTICA_PHARMACEUTICAL_US_LLC-POI0573201600047

PATIENT
  Sex: Female

DRUGS (1)
  1. DIVIGEL [Suspect]
     Active Substance: ESTRADIOL
     Dates: start: 201403

REACTIONS (4)
  - Drug ineffective [Unknown]
  - Crying [Unknown]
  - Mood swings [Unknown]
  - Hot flush [None]

NARRATIVE: CASE EVENT DATE: 201403
